FAERS Safety Report 8609891-1 (Version None)
Quarter: 2012Q3

REPORT INFORMATION
  Report Type: 
  Country: None (occurrence: None)
  Receive Date: 20120821
  Receipt Date: 20120810
  Transmission Date: 20120928
  Serious: Yes (Hospitalization, Other)
  Sender: FDA-Public Use
  Company Number: US-ROCHE-1061682

PATIENT
  Sex: Male
  Weight: 72.64 kg

DRUGS (2)
  1. ACCUTANE [Suspect]
     Dates: start: 19890602, end: 19891201
  2. ACCUTANE [Suspect]
     Indication: ACNE
     Dates: start: 19890602, end: 19891106

REACTIONS (5)
  - DIVERTICULITIS [None]
  - INFLAMMATORY BOWEL DISEASE [None]
  - IRRITABLE BOWEL SYNDROME [None]
  - DEPRESSION [None]
  - COLITIS ULCERATIVE [None]
